FAERS Safety Report 15067167 (Version 1)
Quarter: 2018Q2

REPORT INFORMATION
  Report Type: Report from Study
  Country: US (occurrence: US)
  Receive Date: 20180626
  Receipt Date: 20180626
  Transmission Date: 20180711
  Serious: Yes (Hospitalization, Other)
  Sender: FDA-Public Use
  Company Number: US-GILEAD-2018-0346022

PATIENT
  Age: 79 Year
  Sex: Female

DRUGS (2)
  1. TOBRAMYCIN SULFATE. [Suspect]
     Active Substance: TOBRAMYCIN SULFATE
     Indication: CYSTIC FIBROSIS
     Dosage: 1 DF, Q1MONTH
     Route: 065
  2. AZTREONAM LYSINE [Suspect]
     Active Substance: AZTREONAM LYSINE
     Indication: CYSTIC FIBROSIS
     Dosage: 75 MG, TID, 75 MG, TID, 28 DAYS ON, 28 DAYS OFF
     Route: 055

REACTIONS (2)
  - Lung infection [Unknown]
  - Lung disorder [Unknown]
